FAERS Safety Report 15884548 (Version 2)
Quarter: 2019Q1

REPORT INFORMATION
  Report Type: Spontaneous
  Country: US (occurrence: US)
  Receive Date: 20190129
  Receipt Date: 20190130
  Transmission Date: 20190417
  Serious: No
  Sender: FDA-Public Use
  Company Number: US-009507513-1901USA005935

PATIENT

DRUGS (2)
  1. STERILE DILUENT (WATER) [Suspect]
     Active Substance: WATER
  2. PREGNYL [Suspect]
     Active Substance: CHORIOGONADOTROPIN ALFA

REACTIONS (3)
  - Product quality issue [Unknown]
  - No adverse event [Unknown]
  - Product dose omission [Unknown]
